FAERS Safety Report 24259356 (Version 1)
Quarter: 2024Q3

REPORT INFORMATION
  Report Type: Spontaneous
  Country: US (occurrence: None)
  Receive Date: 20240827
  Receipt Date: 20240827
  Transmission Date: 20241016
  Serious: Yes (Life-Threatening)
  Sender: Public
  Company Number: None

PATIENT
  Age: 30 Year
  Sex: Male
  Weight: 61.4 kg

DRUGS (5)
  1. CEFTAROLINE [Suspect]
     Active Substance: CEFTAROLINE
     Indication: Staphylococcal bacteraemia
     Dosage: FREQUENCY : 3 TIMES A DAY;?
     Route: 042
     Dates: start: 20240808, end: 20240822
  2. CEFTAROLINE [Suspect]
     Active Substance: CEFTAROLINE
     Indication: Endocarditis
  3. CEFTAROLINE [Suspect]
     Active Substance: CEFTAROLINE
     Indication: Septic embolus
  4. CEFTAROLINE [Suspect]
     Active Substance: CEFTAROLINE
     Indication: Empyema
  5. DAPTOMYCIN [Concomitant]
     Active Substance: DAPTOMYCIN
     Dates: start: 20240810, end: 20240826

REACTIONS (3)
  - Drug-induced liver injury [None]
  - Product dose omission issue [None]
  - Therapy cessation [None]

NARRATIVE: CASE EVENT DATE: 20240823
